FAERS Safety Report 23778114 (Version 1)
Quarter: 2024Q2

REPORT INFORMATION
  Report Type: Report from Study
  Country: GB (occurrence: GB)
  Receive Date: 20240424
  Receipt Date: 20240424
  Transmission Date: 20240716
  Serious: Yes (Hospitalization, Other)
  Sender: FDA-Public Use
  Company Number: GB-002147023-NVSC2022GB142540

PATIENT
  Sex: Female

DRUGS (1)
  1. ERELZI [Suspect]
     Active Substance: ETANERCEPT-SZZS
     Indication: Spinal osteoarthritis
     Dosage: 50 MG, (EW)
     Route: 058

REACTIONS (2)
  - Hospitalisation [Unknown]
  - Lower respiratory tract infection [Unknown]
